FAERS Safety Report 25868889 (Version 1)
Quarter: 2025Q4

REPORT INFORMATION
  Report Type: Spontaneous
  Country: US (occurrence: US)
  Receive Date: 20251001
  Receipt Date: 20251001
  Transmission Date: 20260117
  Serious: Yes (Other)
  Sender: Kindos Pharmaceuticals
  Company Number: US-KINDOS-2025MPLIT00349

PATIENT
  Age: 62 Year
  Sex: Male

DRUGS (1)
  1. HYDRALAZINE HYDROCHLORIDE [Suspect]
     Active Substance: HYDRALAZINE HYDROCHLORIDE
     Indication: Hypertension
     Route: 065

REACTIONS (3)
  - Glomerulonephritis [Unknown]
  - Acute kidney injury [Unknown]
  - Antineutrophil cytoplasmic antibody [Unknown]
